FAERS Safety Report 5517367-3 (Version None)
Quarter: 2007Q4

REPORT INFORMATION
  Report Type: 
  Country: None (occurrence: None)
  Receive Date: 20071114
  Receipt Date: 20071101
  Transmission Date: 20080405
  Serious: Yes (Other)
  Sender: FDA-Public Use
  Company Number: GR-AMGEN-UK251284

PATIENT
  Sex: Male
  Weight: 97 kg

DRUGS (2)
  1. KEPIVANCE [Suspect]
     Indication: BONE MARROW TRANSPLANT
     Route: 042
  2. ANTIBIOTICS [Concomitant]

REACTIONS (1)
  - RASH [None]
